FAERS Safety Report 7754069-7 (Version None)
Quarter: 2011Q3

REPORT INFORMATION
  Report Type: 
  Country: None (occurrence: None)
  Receive Date: 20110915
  Receipt Date: 20110216
  Transmission Date: 20111222
  Serious: No
  Sender: FDA-Public Use
  Company Number: US-BAYER-2011-016037

PATIENT
  Sex: Female

DRUGS (1)
  1. MAGNEVIST [Suspect]
     Indication: NUCLEAR MAGNETIC RESONANCE IMAGING BRAIN
     Dosage: 12 ML, ONCE
     Dates: start: 20110216, end: 20110216

REACTIONS (3)
  - THROAT TIGHTNESS [None]
  - LACRIMATION INCREASED [None]
  - NASAL CONGESTION [None]
